FAERS Safety Report 4503050-X (Version None)
Quarter: 2004Q4

REPORT INFORMATION
  Report Type: 
  Country: None (occurrence: None)
  Receive Date: 20041112
  Receipt Date: 20041102
  Transmission Date: 20050328
  Serious: Yes (Hospitalization)
  Sender: FDA-Public Use
  Company Number: 2004CG01261

PATIENT
  Age: 53 Year
  Sex: Male
  Weight: 80 kg

DRUGS (3)
  1. NEXIUM [Suspect]
     Dates: start: 20040605, end: 20040608
  2. TRIATEC [Suspect]
     Dosage: 2.5 MG DAILY PO
     Route: 048
     Dates: start: 20040605, end: 20040608
  3. LASILIX [Suspect]
     Dosage: 100 MG DAILY IV
     Route: 042

REACTIONS (2)
  - BLOOD BLISTER [None]
  - RASH MACULO-PAPULAR [None]
